FAERS Safety Report 4746125-2 (Version None)
Quarter: 2005Q3

REPORT INFORMATION
  Report Type: 
  Country: None (occurrence: None)
  Receive Date: 20050816
  Receipt Date: 20050809
  Transmission Date: 20060218
  Serious: Yes (Other)
  Sender: FDA-Public Use
  Company Number: US-BRISTOL-MYERS SQUIBB COMPANY-13067426

PATIENT
  Sex: Male

DRUGS (2)
  1. TEQUIN [Suspect]
     Indication: BRONCHITIS
     Route: 048
  2. PREDNISONE [Concomitant]
     Indication: CHRONIC OBSTRUCTIVE PULMONARY DISEASE

REACTIONS (1)
  - SERUM SICKNESS [None]
